FAERS Safety Report 4639149-7 (Version None)
Quarter: 2005Q2

REPORT INFORMATION
  Report Type: 
  Country: None (occurrence: None)
  Receive Date: 20050418
  Receipt Date: 20050406
  Transmission Date: 20051028
  Serious: Yes (Death, Life-Threatening, Hospitalization)
  Sender: FDA-Public Use
  Company Number: 2005-03-1228

PATIENT
  Age: 73 Year
  Sex: Male

DRUGS (9)
  1. AERIUS (DESLORATADINE) TABLETS    'LIKE CLARINEX' [Suspect]
     Dosage: 1 DOSE QD
     Dates: start: 20050222, end: 20050226
  2. ESOMEPRAZOLE TABLETS [Suspect]
     Dosage: 1 DOSE QD
     Dates: start: 20050222, end: 20050226
  3. ZYLORIC TABLETS [Suspect]
     Dosage: 1DOSE QD
     Dates: start: 20050209, end: 20050226
  4. TRIATEC (RAMIPRIL) CAPSULES [Suspect]
     Dosage: SEE IMAGE
     Dates: start: 20050120, end: 20050226
  5. TRIATEC (RAMIPRIL) CAPSULES [Suspect]
     Dosage: SEE IMAGE
     Dates: end: 20050226
  6. TRIATEC (RAMIPRIL) CAPSULES [Suspect]
     Dosage: SEE IMAGE
     Dates: start: 20050120
  7. TENORMIN [Concomitant]
  8. KARDEGIC SACHETS (ACETYLSALICYLATE LYSINE) [Concomitant]
  9. LASILIX [Concomitant]

REACTIONS (11)
  - AGRANULOCYTOSIS [None]
  - BLOOD DISORDER [None]
  - BRONCHITIS [None]
  - CARDIAC ARREST [None]
  - CIRCULATORY COLLAPSE [None]
  - DRUG TOXICITY [None]
  - LUNG DISORDER [None]
  - NEUTROPHIL COUNT ABNORMAL [None]
  - RESPIRATORY DISORDER [None]
  - SEPTIC SHOCK [None]
  - WHITE BLOOD CELL COUNT DECREASED [None]
